FAERS Safety Report 25083975 (Version 1)
Quarter: 2025Q1

REPORT INFORMATION
  Report Type: Report from Study
  Country: US (occurrence: US)
  Receive Date: 20250317
  Receipt Date: 20250317
  Transmission Date: 20250408
  Serious: Yes (Hospitalization, Other)
  Sender: TAKEDA
  Company Number: US-TAKEDA-2025TUS025738

PATIENT
  Sex: Female

DRUGS (23)
  1. FRUQUINTINIB [Suspect]
     Active Substance: FRUQUINTINIB
     Indication: Colon cancer
     Dosage: 5 MILLIGRAM, QD
  2. ACETAMINOPHEN [Concomitant]
     Active Substance: ACETAMINOPHEN
  3. ALENDRONATE SODIUM [Concomitant]
     Active Substance: ALENDRONATE SODIUM
  4. AMIODARONE HYDROCHLORIDE [Concomitant]
     Active Substance: AMIODARONE HYDROCHLORIDE
  5. AMLODIPINE BESYLATE [Concomitant]
     Active Substance: AMLODIPINE BESYLATE
  6. Centrum adults [Concomitant]
  7. CLOBETASOL PROPIONATE [Concomitant]
     Active Substance: CLOBETASOL PROPIONATE
  8. COLACE CLEAR [Concomitant]
     Active Substance: DOCUSATE SODIUM
  9. DULOXETINE HYDROCHLORIDE [Concomitant]
     Active Substance: DULOXETINE HYDROCHLORIDE
  10. FERROUS SULFATE [Concomitant]
     Active Substance: FERROUS SULFATE
  11. GABAPENTIN [Concomitant]
     Active Substance: GABAPENTIN
  12. METHENAMINE HIPPURATE [Concomitant]
     Active Substance: METHENAMINE HIPPURATE
  13. METOPROLOL TARTRATE [Concomitant]
     Active Substance: METOPROLOL TARTRATE
  14. MIRALAX [Concomitant]
     Active Substance: POLYETHYLENE GLYCOL 3350
  15. MYRBETRIQ [Concomitant]
     Active Substance: MIRABEGRON
  16. NITROFURANTOIN MACROCRYSTALS [Concomitant]
     Active Substance: NITROFURANTOIN
  17. NYSTATIN [Concomitant]
     Active Substance: NYSTATIN
  18. MINERALS\VITAMINS [Concomitant]
     Active Substance: MINERALS\VITAMINS
  19. RAMELTEON [Concomitant]
     Active Substance: RAMELTEON
  20. TAMSULOSIN HYDROCHLORIDE [Concomitant]
     Active Substance: TAMSULOSIN HYDROCHLORIDE
  21. VITAMIN D [Concomitant]
     Active Substance: VITAMIN D NOS
  22. VITAMIN D3 [Concomitant]
     Active Substance: CHOLECALCIFEROL
  23. XARELTO [Concomitant]
     Active Substance: RIVAROXABAN

REACTIONS (2)
  - Urinary tract infection [Unknown]
  - Kidney infection [Unknown]
